FAERS Safety Report 9357934 (Version 2)
Quarter: 2013Q3

REPORT INFORMATION
  Report Type: Spontaneous
  Country: US (occurrence: US)
  Receive Date: 20130620
  Receipt Date: 20130725
  Transmission Date: 20140515
  Serious: Yes (Other)
  Sender: FDA-Public Use
  Company Number: US-PFIZER INC-2012122393

PATIENT
  Age: 62 Year
  Sex: Female

DRUGS (2)
  1. NORVASC [Suspect]
     Dosage: 10 MG, 1X/DAY
     Route: 048
  2. LISINOPRIL [Suspect]
     Dosage: UNK

REACTIONS (3)
  - Glaucoma [Unknown]
  - Retinal ischaemia [Unknown]
  - Cataract [Unknown]
